FAERS Safety Report 15814702 (Version 2)
Quarter: 2019Q1

REPORT INFORMATION
  Report Type: Report from Study
  Country: US (occurrence: US)
  Receive Date: 20190111
  Receipt Date: 20190122
  Transmission Date: 20190417
  Serious: Yes (Hospitalization)
  Sender: FDA-Public Use
  Company Number: US-ACTELION-A-US2018-168620

PATIENT
  Age: 72 Year
  Sex: Male

DRUGS (2)
  1. OPSUMIT [Suspect]
     Active Substance: MACITENTAN
     Indication: PULMONARY HYPERTENSION
     Dosage: 10 MG, QD
     Route: 048
  2. AMLODIPINE [Concomitant]
     Active Substance: AMLODIPINE BESYLATE

REACTIONS (6)
  - Pulmonary hypertension [Unknown]
  - Disease progression [Unknown]
  - Hypoglycaemia [Recovered/Resolved]
  - Chronic obstructive pulmonary disease [Recovered/Resolved]
  - Muscular weakness [Recovered/Resolved]
  - Congenital heart valve disorder [Recovering/Resolving]

NARRATIVE: CASE EVENT DATE: 20180218
